FAERS Safety Report 8904787 (Version 9)
Quarter: 2015Q1

REPORT INFORMATION
  Report Type: Spontaneous
  Country: US (occurrence: US)
  Receive Date: 20121113
  Receipt Date: 20150130
  Transmission Date: 20150721
  Serious: Yes (Disabling, Other)
  Sender: FDA-Public Use
  Company Number: US-009507513-1211USA003845

PATIENT
  Sex: Male

DRUGS (2)
  1. PROSCAR [Suspect]
     Active Substance: FINASTERIDE
     Indication: BENIGN PROSTATIC HYPERPLASIA
     Dosage: 5 MG, UNK
     Route: 048
     Dates: start: 19980717, end: 20030520
  2. PROPECIA [Suspect]
     Active Substance: FINASTERIDE
     Indication: ANDROGENETIC ALOPECIA
     Dosage: 1 MG, QD
     Route: 048
     Dates: start: 20040605, end: 20110710

REACTIONS (52)
  - Headache [Not Recovered/Not Resolved]
  - Sinus bradycardia [Unknown]
  - Urinary retention [Unknown]
  - Ejaculation disorder [Unknown]
  - Rosacea [Unknown]
  - Testicular atrophy [Unknown]
  - Benign prostatic hyperplasia [Unknown]
  - Transurethral incision of prostate [Unknown]
  - Oedema [Unknown]
  - Supraventricular tachycardia [Unknown]
  - Back pain [Unknown]
  - Tinnitus [Unknown]
  - Gastrooesophageal reflux disease [Unknown]
  - Blood triglycerides increased [Unknown]
  - Cataract operation [Unknown]
  - Genitourinary tract neoplasm [Unknown]
  - Deafness [Unknown]
  - Cognitive disorder [Not Recovered/Not Resolved]
  - Essential hypertension [Unknown]
  - Hypercholesterolaemia [Unknown]
  - Spermatocele [Unknown]
  - Fatigue [Unknown]
  - Prostatitis [Recovered/Resolved]
  - Urethral pain [Unknown]
  - Balanoposthitis [Unknown]
  - Sexual dysfunction [Not Recovered/Not Resolved]
  - Erectile dysfunction [Unknown]
  - Depression [Unknown]
  - Meniscus injury [Not Recovered/Not Resolved]
  - Bacterial infection [Unknown]
  - Prostatitis [Unknown]
  - Genital disorder male [Unknown]
  - Cholecystectomy [Unknown]
  - Limb injury [Unknown]
  - Dyspepsia [Unknown]
  - Impaired fasting glucose [Unknown]
  - Intervertebral disc degeneration [Unknown]
  - Cataract operation [Unknown]
  - Urinary tract obstruction [Unknown]
  - Drug ineffective [Unknown]
  - Anxiety [Unknown]
  - Large intestine polyp [Unknown]
  - Arthritis [Unknown]
  - Unwanted awareness during anaesthesia [Unknown]
  - Sleep apnoea syndrome [Unknown]
  - Otorhinolaryngological surgery [Unknown]
  - Pain [Unknown]
  - Barrett^s oesophagus [Unknown]
  - Arthralgia [Unknown]
  - Palpitations [Unknown]
  - Dysuria [Recovered/Resolved]
  - Rash [Unknown]

NARRATIVE: CASE EVENT DATE: 19980717
